FAERS Safety Report 10228038 (Version 1)
Quarter: 2014Q2

REPORT INFORMATION
  Report Type: Spontaneous
  Country: FR (occurrence: FR)
  Receive Date: 20140610
  Receipt Date: 20140610
  Transmission Date: 20141212
  Serious: Yes (Death)
  Sender: FDA-Public Use
  Company Number: FR-OTSUKA-US-2014-11230

PATIENT
  Sex: 0

DRUGS (3)
  1. BUSULFEX [Suspect]
     Indication: STEM CELL TRANSPLANT
     Dosage: 6.4 MG/KG, TOTAL DOSE
     Route: 042
  2. FLUDARABINE [Suspect]
     Indication: STEM CELL TRANSPLANT
     Dosage: 30 MG/M2, FIVE OR FOUR CONSECUTIVE DAYS
     Route: 065
  3. ANTITHYMOCYTE IMMUNOGLOBULIN [Suspect]
     Indication: STEM CELL TRANSPLANT
     Dosage: 5 MG/KG, TOTAL DOSE
     Route: 065

REACTIONS (2)
  - Second primary malignancy [Fatal]
  - Drug administration error [Unknown]
